FAERS Safety Report 7732711-4 (Version None)
Quarter: 2011Q3

REPORT INFORMATION
  Report Type: 
  Country: None (occurrence: None)
  Receive Date: 20110907
  Receipt Date: 20110829
  Transmission Date: 20111222
  Serious: No
  Sender: FDA-Public Use
  Company Number: US-BIOGENIDEC-2011BI032765

PATIENT
  Sex: Female

DRUGS (2)
  1. AVONEX [Suspect]
     Route: 030
  2. AVONEX [Suspect]
     Indication: MULTIPLE SCLEROSIS
     Route: 030
     Dates: start: 20101230

REACTIONS (8)
  - JOINT SWELLING [None]
  - DEPRESSION [None]
  - COGNITIVE DISORDER [None]
  - FATIGUE [None]
  - MUSCLE SPASMS [None]
  - HYPOAESTHESIA [None]
  - BALANCE DISORDER [None]
  - MOOD ALTERED [None]
